FAERS Safety Report 24327486 (Version 2)
Quarter: 2024Q4

REPORT INFORMATION
  Report Type: Spontaneous
  Country: JP (occurrence: JP)
  Receive Date: 20240917
  Receipt Date: 20241113
  Transmission Date: 20250114
  Serious: Yes (Hospitalization, Other)
  Sender: CHEPLAPHARM
  Company Number: JP-CHUGAI-2023002255

PATIENT
  Age: 74 Year
  Sex: Male
  Weight: 46 kg

DRUGS (20)
  1. CAPECITABINE [Suspect]
     Active Substance: CAPECITABINE
     Indication: Colon cancer
     Dosage: BID?DAILY DOSE: 3000 MILLIGRAM
     Route: 048
     Dates: start: 20211126, end: 20211208
  2. CAPECITABINE [Suspect]
     Active Substance: CAPECITABINE
     Indication: Rectal cancer
     Dosage: BID?DAILY DOSE: 3000 MILLIGRAM
     Route: 048
     Dates: start: 20211126, end: 20211208
  3. CAPECITABINE [Suspect]
     Active Substance: CAPECITABINE
     Indication: Colon cancer
     Dosage: BID?DAILY DOSE: 3000 MILLIGRAM
     Route: 048
     Dates: start: 20211217, end: 20211230
  4. CAPECITABINE [Suspect]
     Active Substance: CAPECITABINE
     Indication: Rectal cancer
     Dosage: BID?DAILY DOSE: 3000 MILLIGRAM
     Route: 048
     Dates: start: 20211217, end: 20211230
  5. CAPECITABINE [Suspect]
     Active Substance: CAPECITABINE
     Indication: Colon cancer
     Dosage: BID?DAILY DOSE: 3000 MILLIGRAM
     Route: 048
     Dates: start: 20220107, end: 20220120
  6. CAPECITABINE [Suspect]
     Active Substance: CAPECITABINE
     Indication: Rectal cancer
     Dosage: BID?DAILY DOSE: 3000 MILLIGRAM
     Route: 048
     Dates: start: 20220107, end: 20220120
  7. CAPECITABINE [Suspect]
     Active Substance: CAPECITABINE
     Indication: Colon cancer
     Dosage: BID?DAILY DOSE: 3000 MILLIGRAM
     Route: 048
     Dates: start: 20220128, end: 20220210
  8. CAPECITABINE [Suspect]
     Active Substance: CAPECITABINE
     Indication: Rectal cancer
     Dosage: BID?DAILY DOSE: 3000 MILLIGRAM
     Route: 048
     Dates: start: 20220128, end: 20220210
  9. CAPECITABINE [Suspect]
     Active Substance: CAPECITABINE
     Indication: Colon cancer
     Dosage: BID?DAILY DOSE: 3000 MILLIGRAM
     Route: 048
     Dates: start: 20220304, end: 20220314
  10. CAPECITABINE [Suspect]
     Active Substance: CAPECITABINE
     Indication: Rectal cancer
     Dosage: BID?DAILY DOSE: 3000 MILLIGRAM
     Route: 048
     Dates: start: 20220304, end: 20220314
  11. OXALIPLATIN [Suspect]
     Active Substance: OXALIPLATIN
     Indication: Colon cancer
     Dosage: DROPS, QD/ IV DRIP?DAILY DOSE: 160 MILLIGRAM
     Route: 042
     Dates: start: 20211126, end: 20211126
  12. OXALIPLATIN [Suspect]
     Active Substance: OXALIPLATIN
     Indication: Rectal cancer
     Dosage: DROPS, QD/ IV DRIP?DAILY DOSE: 160 MILLIGRAM
     Route: 042
     Dates: start: 20211126, end: 20211126
  13. OXALIPLATIN [Suspect]
     Active Substance: OXALIPLATIN
     Indication: Colon cancer
     Dosage: DROPS, QD/ IV DRIP?DAILY DOSE: 160 MILLIGRAM
     Route: 042
     Dates: start: 20211217, end: 20211217
  14. OXALIPLATIN [Suspect]
     Active Substance: OXALIPLATIN
     Indication: Rectal cancer
     Dosage: DROPS, QD/ IV DRIP?DAILY DOSE: 160 MILLIGRAM
     Route: 042
     Dates: start: 20211217, end: 20211217
  15. OXALIPLATIN [Suspect]
     Active Substance: OXALIPLATIN
     Indication: Colon cancer
     Dosage: DROPS, QD/ IV DRIP?DAILY DOSE: 160 MILLIGRAM
     Route: 042
     Dates: start: 20220107, end: 20220107
  16. OXALIPLATIN [Suspect]
     Active Substance: OXALIPLATIN
     Indication: Rectal cancer
     Dosage: DROPS, QD/ IV DRIP?DAILY DOSE: 160 MILLIGRAM
     Route: 042
     Dates: start: 20220107, end: 20220107
  17. OXALIPLATIN [Suspect]
     Active Substance: OXALIPLATIN
     Indication: Colon cancer
     Dosage: DROPS, QD/ IV DRIP?DAILY DOSE: 160 MILLIGRAM
     Route: 042
     Dates: start: 20220128, end: 20220128
  18. OXALIPLATIN [Suspect]
     Active Substance: OXALIPLATIN
     Indication: Rectal cancer
     Dosage: DROPS, QD/ IV DRIP?DAILY DOSE: 160 MILLIGRAM
     Route: 042
     Dates: start: 20220128, end: 20220128
  19. OXALIPLATIN [Suspect]
     Active Substance: OXALIPLATIN
     Indication: Colon cancer
     Dosage: DROPS, QD/ IV DRIP?DAILY DOSE: 160 MILLIGRAM
     Route: 042
     Dates: start: 20220304, end: 20220304
  20. OXALIPLATIN [Suspect]
     Active Substance: OXALIPLATIN
     Indication: Rectal cancer
     Dosage: DROPS, QD/ IV DRIP?DAILY DOSE: 160 MILLIGRAM
     Route: 042
     Dates: start: 20220304, end: 20220304

REACTIONS (3)
  - Gastric ulcer haemorrhage [Recovered/Resolved]
  - Blood loss anaemia [Unknown]
  - Faeces discoloured [Unknown]

NARRATIVE: CASE EVENT DATE: 20220315
